FAERS Safety Report 23441219 (Version 1)
Quarter: 2024Q1

REPORT INFORMATION
  Report Type: Spontaneous
  Country: GB (occurrence: GB)
  Receive Date: 20240125
  Receipt Date: 20240125
  Transmission Date: 20240409
  Serious: Yes (Other)
  Sender: FDA-Public Use
  Company Number: None

PATIENT

DRUGS (6)
  1. PREDNISOLONE [Suspect]
     Active Substance: PREDNISOLONE
     Indication: Chronic obstructive pulmonary disease
     Dosage: 5 DOSAGE FORM, QD (FIVE TO BE TAKEN EACH DAY)
  2. BEVESPI AEROSPHERE [Concomitant]
     Active Substance: FORMOTEROL FUMARATE\GLYCOPYRROLATE
     Indication: Chronic obstructive pulmonary disease
     Dosage: 2 DOSAGE FORM, BID (INHALED)
     Route: 055
     Dates: start: 20231108
  3. CIPROFLOXACIN [Concomitant]
     Active Substance: CIPROFLOXACIN
     Indication: Chronic obstructive pulmonary disease
     Dosage: 1 DOSAGE FORM, BID
     Dates: start: 20240110
  4. LEVOTHYROXINE [Concomitant]
     Active Substance: LEVOTHYROXINE\LEVOTHYROXINE SODIUM
     Dosage: 1 DOSAGE FORM, QD (MORNING)
     Dates: start: 20231204
  5. MIRTAZAPINE [Concomitant]
     Active Substance: MIRTAZAPINE
     Dosage: 1 DOSAGE FORM, QD (AT NIGHT)
     Dates: start: 20231106
  6. ALBUTEROL [Concomitant]
     Active Substance: ALBUTEROL
     Dosage: 1 DOSAGE FORM, PRN (INHALED WHEN REQUIRED)
     Route: 055
     Dates: start: 20231108, end: 20231207

REACTIONS (5)
  - Pharyngeal swelling [Unknown]
  - Swelling face [Unknown]
  - Rash vesicular [Unknown]
  - Rash [Unknown]
  - Hypersensitivity [Recovered/Resolved]
